FAERS Safety Report 10366551 (Version 4)
Quarter: 2014Q3

REPORT INFORMATION
  Report Type: Spontaneous
  Country: US (occurrence: US)
  Receive Date: 20140804
  Receipt Date: 20140901
  Transmission Date: 20150326
  Serious: Yes (Life-Threatening, Hospitalization, Other)
  Sender: FDA-Public Use
  Company Number: PHEH2014US015115

PATIENT
  Age: 21 Year
  Sex: Female

DRUGS (8)
  1. CLOZARIL [Suspect]
     Active Substance: CLOZAPINE
     Dosage: 50 MG, UNK
  2. METFORMIN [Concomitant]
     Active Substance: METFORMIN HYDROCHLORIDE
     Dosage: UNK
  3. CLOZAPINE. [Suspect]
     Active Substance: CLOZAPINE
     Dosage: UNK
  4. STRATTERA [Concomitant]
     Active Substance: ATOMOXETINE HYDROCHLORIDE
     Dosage: UNK
  5. TENEX [Concomitant]
     Active Substance: GUANFACINE HYDROCHLORIDE
     Dosage: UNK
  6. CLOZARIL [Suspect]
     Active Substance: CLOZAPINE
     Dosage: UNK
  7. CLOZARIL [Suspect]
     Active Substance: CLOZAPINE
     Dosage: 25 MG, UNK
  8. LITHIUM [Concomitant]
     Active Substance: LITHIUM CARBONATE
     Dosage: UNK

REACTIONS (8)
  - Mental disorder [Recovered/Resolved]
  - Depression [Recovered/Resolved]
  - Apparent death [Unknown]
  - Drug ineffective [Recovered/Resolved]
  - Feeling abnormal [Recovered/Resolved]
  - Drug withdrawal syndrome [Unknown]
  - Self-injurious ideation [Unknown]
  - Drug administered to patient of inappropriate age [Unknown]

NARRATIVE: CASE EVENT DATE: 20140606
